FAERS Safety Report 9776804 (Version 2)
Quarter: 2013Q4

REPORT INFORMATION
  Report Type: Spontaneous
  Country: IT (occurrence: IT)
  Receive Date: 20131220
  Receipt Date: 20131220
  Transmission Date: 20140711
  Serious: Yes (Other)
  Sender: FDA-Public Use
  Company Number: IT-ROCHE-1314942

PATIENT
  Age: 56 Year
  Sex: Female

DRUGS (5)
  1. PEGASYS [Suspect]
     Indication: CHRONIC HEPATITIS C
     Route: 058
     Dates: start: 20131024, end: 20131202
  2. PEGASYS [Suspect]
     Route: 058
     Dates: start: 20131010, end: 20131024
  3. COPEGUS [Suspect]
     Indication: CHRONIC HEPATITIS C
     Dosage: TAB 400 MG
     Route: 048
     Dates: start: 20131010, end: 20131128
  4. COPEGUS [Suspect]
     Route: 048
     Dates: start: 20131129, end: 20131202
  5. INCIVO [Suspect]
     Indication: CHRONIC HEPATITIS C
     Route: 048
     Dates: start: 20131010, end: 20131202

REACTIONS (3)
  - Anaemia [Unknown]
  - Leukopenia [Recovering/Resolving]
  - Thrombocytopenia [Recovering/Resolving]
